FAERS Safety Report 6588400-5 (Version None)
Quarter: 2010Q1

REPORT INFORMATION
  Report Type: 
  Country: None (occurrence: None)
  Receive Date: 20100218
  Receipt Date: 20100210
  Transmission Date: 20100710
  Serious: Yes (Other)
  Sender: FDA-Public Use
  Company Number: CH-ROCHE-684832

PATIENT
  Age: 47 Year
  Sex: Female

DRUGS (5)
  1. BEVACIZUMAB [Suspect]
     Dosage: FREQUENCY REPORTED AS 2 WEEKS
     Route: 042
     Dates: start: 20091012, end: 20100205
  2. TAXOL [Concomitant]
     Dates: start: 20091012, end: 20100205
  3. FRAXIPARINE [Concomitant]
  4. DICLOFENAC [Concomitant]
  5. NEXIUM [Concomitant]

REACTIONS (1)
  - MALIGNANT NEOPLASM PROGRESSION [None]
